FAERS Safety Report 4319784-6 (Version None)
Quarter: 2004Q1

REPORT INFORMATION
  Report Type: 
  Country: None (occurrence: None)
  Receive Date: 20040316
  Receipt Date: 20040303
  Transmission Date: 20041129
  Serious: Yes (Hospitalization, Other)
  Sender: FDA-Public Use
  Company Number: US_010770506

PATIENT
  Age: 60 Year
  Sex: Male
  Weight: 100 kg

DRUGS (8)
  1. HUMALOG [Suspect]
     Indication: DIABETES MELLITUS
     Dosage: 3 U/DAY
     Dates: start: 20000101
  2. HUMALOG [Suspect]
     Indication: DIABETES MELLITUS
     Dosage: 6 U/DAY
     Dates: start: 20010101
  3. HUMULIN N [Suspect]
     Indication: DIABETES MELLITUS
     Dosage: 3 U/AT BEDTIME
     Dates: start: 20021001
  4. HUMULIN 70/30 [Suspect]
     Indication: DIABETES MELLITUS
     Dates: start: 20000101, end: 20010101
  5. FUROSEMIDE [Concomitant]
  6. ZAROXOLYN [Concomitant]
  7. ACTOS [Concomitant]
  8. CELEXA [Concomitant]

REACTIONS (16)
  - BLOOD GLUCOSE DECREASED [None]
  - BLOOD GLUCOSE INCREASED [None]
  - CARDIOVASCULAR DISORDER [None]
  - CATARACT OPERATION [None]
  - DEHYDRATION [None]
  - DIABETIC RETINOPATHY [None]
  - FALL [None]
  - FLUID RETENTION [None]
  - HAEMORRHAGE [None]
  - HEADACHE [None]
  - HEART RATE DECREASED [None]
  - HYPOTENSION [None]
  - JOINT SPRAIN [None]
  - MUSCLE STRAIN [None]
  - RASH [None]
  - SLUGGISHNESS [None]
